FAERS Safety Report 8363852-9 (Version None)
Quarter: 2012Q2

REPORT INFORMATION
  Report Type: 
  Country: None (occurrence: None)
  Receive Date: 20120516
  Receipt Date: 20120105
  Transmission Date: 20120825
  Serious: Yes (Hospitalization, Other)
  Sender: FDA-Public Use
  Company Number: US-ALEXION-A201200037

PATIENT
  Sex: Male

DRUGS (2)
  1. SOLIRIS [Suspect]
     Dosage: 900 MG, Q2W
     Route: 042
  2. SOLIRIS [Suspect]
     Indication: PAROXYSMAL NOCTURNAL HAEMOGLOBINURIA
     Dosage: 600 MG, QW
     Route: 042
     Dates: start: 20090101

REACTIONS (3)
  - CHEST PAIN [None]
  - PNEUMONIA [None]
  - HAEMOGLOBIN DECREASED [None]
